FAERS Safety Report 13840836 (Version 1)
Quarter: 2017Q3

REPORT INFORMATION
  Report Type: Spontaneous
  Country: FR (occurrence: FR)
  Receive Date: 20170807
  Receipt Date: 20170807
  Transmission Date: 20171127
  Serious: Yes (Hospitalization)
  Sender: FDA-Public Use
  Company Number: FR-SA-2017SA141202

PATIENT
  Age: 78 Year
  Sex: Female

DRUGS (7)
  1. LOVENOX [Suspect]
     Active Substance: ENOXAPARIN SODIUM
     Route: 051
  2. ALPRAZOLAM. [Suspect]
     Active Substance: ALPRAZOLAM
     Route: 048
  3. MODAMIDE [Suspect]
     Active Substance: AMILORIDE HYDROCHLORIDE
     Route: 065
  4. XELODA [Suspect]
     Active Substance: CAPECITABINE
     Indication: RECTAL ADENOCARCINOMA
     Route: 048
     Dates: start: 20170710, end: 20170710
  5. PARACETAMOL [Suspect]
     Active Substance: ACETAMINOPHEN
     Route: 065
  6. LACTULOSE. [Suspect]
     Active Substance: LACTULOSE
     Route: 065
  7. MONOPROST [Suspect]
     Active Substance: LATANOPROST
     Route: 065

REACTIONS (5)
  - Confusional state [Recovering/Resolving]
  - Aphasia [Recovering/Resolving]
  - Balance disorder [Recovering/Resolving]
  - Ataxia [Recovering/Resolving]
  - Memory impairment [Recovering/Resolving]

NARRATIVE: CASE EVENT DATE: 20170711
